FAERS Safety Report 17298694 (Version 1)
Quarter: 2020Q1

REPORT INFORMATION
  Report Type: Spontaneous
  Country: GB (occurrence: GB)
  Receive Date: 20200122
  Receipt Date: 20200122
  Transmission Date: 20200409
  Serious: Yes (Other)
  Sender: FDA-Public Use
  Company Number: NVSC2020GB010320

PATIENT
  Age: 29 Year
  Sex: Female

DRUGS (1)
  1. TEGRETOL [Suspect]
     Active Substance: CARBAMAZEPINE
     Indication: PRODUCT USED FOR UNKNOWN INDICATION
     Dosage: 35 ML, QD (10 ML IN THE MORNING, 15 ML IN THE AFTERNOON AND 10 ML IN THE EVENING)
     Route: 065

REACTIONS (6)
  - Lip disorder [Unknown]
  - Learning disability [Unknown]
  - Incorrect dose administered [Unknown]
  - Epilepsy [Unknown]
  - Coordination abnormal [Unknown]
  - Dysphagia [Unknown]
